FAERS Safety Report 18748770 (Version 4)
Quarter: 2022Q1

REPORT INFORMATION
  Report Type: Spontaneous
  Country: PL (occurrence: PL)
  Receive Date: 20210116
  Receipt Date: 20220316
  Transmission Date: 20220423
  Serious: Yes (Life-Threatening, Hospitalization, Other)
  Sender: FDA-Public Use
  Company Number: PL-ADAMED-00102979

PATIENT
  Age: 69 Year
  Sex: Female

DRUGS (13)
  1. METOPROLOL [Interacting]
     Active Substance: METOPROLOL
     Indication: Hypertension
     Dosage: 100 MILLIGRAM, ONCE A DAY
     Route: 048
  2. METOPROLOL [Interacting]
     Active Substance: METOPROLOL
     Dosage: 200 UNK
     Route: 048
  3. ROSUVASTATIN [Suspect]
     Active Substance: ROSUVASTATIN
     Indication: Hypertension
     Dosage: 10 MILLIGRAM, ONCE A DAY
     Route: 048
  4. ASPIRIN [Interacting]
     Active Substance: ASPIRIN
     Indication: Viral infection
     Dosage: UNK
     Route: 048
  5. AMLODIPINE\INDAPAMIDE\PERINDOPRIL [Suspect]
     Active Substance: AMLODIPINE\INDAPAMIDE\PERINDOPRIL
     Indication: Hypertension
     Dosage: 1 DOSAGE FORM, ONCE A DAY
     Route: 048
  6. DABIGATRAN [Interacting]
     Active Substance: DABIGATRAN
     Indication: Cardiovascular event prophylaxis
     Dosage: 300 MILLIGRAM, ONCE A DAY
     Route: 048
  7. DABIGATRAN [Interacting]
     Active Substance: DABIGATRAN
     Indication: Anticoagulant therapy
     Dosage: 150 MILLIGRAM, TWO TIMES A DAY
     Route: 048
  8. ITRACONAZOLE [Interacting]
     Active Substance: ITRACONAZOLE
     Indication: Tinea versicolour
     Dosage: 100 MILLIGRAM, TWO TIMES A DAY
     Route: 048
  9. KETOPROFEN [Suspect]
     Active Substance: KETOPROFEN
     Indication: Arthralgia
     Dosage: UNK
     Route: 048
  10. KETOPROFEN [Suspect]
     Active Substance: KETOPROFEN
     Indication: Analgesic therapy
  11. NIMESULIDE [Interacting]
     Active Substance: NIMESULIDE
     Indication: Antiinflammatory therapy
     Dosage: 100 MILLIGRAM, TWO TIMES A DAY
     Route: 048
  12. NIMESULIDE [Interacting]
     Active Substance: NIMESULIDE
     Indication: Analgesic therapy
     Dosage: UNK
     Route: 065
  13. PROPAFENONE [Suspect]
     Active Substance: PROPAFENONE
     Indication: Atrial fibrillation
     Dosage: 300 MILLIGRAM 1 AS NECESSARY
     Route: 048

REACTIONS (23)
  - Atrioventricular block complete [Recovered/Resolved]
  - Syncope [Recovered/Resolved]
  - Gastrointestinal haemorrhage [Recovered/Resolved]
  - Drug interaction [Recovered/Resolved]
  - Circumstance or information capable of leading to medication error [Recovering/Resolving]
  - Drug-disease interaction [Unknown]
  - Haemorrhage [Unknown]
  - Bradyarrhythmia [Recovered/Resolved]
  - Circumstance or information capable of leading to medication error [Recovering/Resolving]
  - Gastritis erosive [Recovered/Resolved]
  - Asthenia [Recovered/Resolved]
  - Drug interaction [Unknown]
  - Cardiomyopathy [Recovered/Resolved]
  - Troponin increased [Recovered/Resolved]
  - Pallor [Recovered/Resolved]
  - Anaemia [Recovered/Resolved]
  - Incorrect dose administered [Unknown]
  - Drug ineffective [Unknown]
  - Product prescribing issue [Recovered/Resolved]
  - Duplicate therapy error [Recovered/Resolved]
  - Product dispensing issue [Unknown]
  - Intentional product use issue [Unknown]
  - Off label use [Unknown]
